FAERS Safety Report 5058037-8 (Version None)
Quarter: 2006Q3

REPORT INFORMATION
  Report Type: 
  Country: None (occurrence: None)
  Receive Date: 20060721
  Receipt Date: 20060621
  Transmission Date: 20061208
  Serious: Yes (Life-Threatening, Hospitalization)
  Sender: FDA-Public Use
  Company Number: JP-ROCHE-452573

PATIENT
  Age: 81 Year
  Sex: Female

DRUGS (7)
  1. TORSEMIDE [Suspect]
     Route: 048
     Dates: start: 20060425, end: 20060612
  2. PANALDINE [Suspect]
     Indication: THROMBOSIS PROPHYLAXIS
     Route: 048
     Dates: start: 20060425, end: 20060612
  3. ALDACTONE [Suspect]
     Indication: DRUG USE FOR UNKNOWN INDICATION
     Route: 048
  4. TAKEPRON [Suspect]
     Indication: OESOPHAGITIS
     Route: 048
     Dates: start: 20060425, end: 20060612
  5. LIPOVAS [Suspect]
     Indication: HYPERCHOLESTEROLAEMIA
     Route: 048
     Dates: start: 20060425, end: 20060612
  6. BLOPRESS [Suspect]
     Route: 048
     Dates: start: 20060425, end: 20060612
  7. ASPIRIN [Suspect]
     Indication: ACUTE MYOCARDIAL INFARCTION
     Route: 048
     Dates: start: 20060425

REACTIONS (3)
  - AGRANULOCYTOSIS [None]
  - MALAISE [None]
  - SEPSIS [None]
